FAERS Safety Report 5757778-4 (Version None)
Quarter: 2008Q2

REPORT INFORMATION
  Report Type: 
  Country: None (occurrence: None)
  Receive Date: 20080529
  Receipt Date: 20080516
  Transmission Date: 20081010
  Serious: Yes (Life-Threatening)
  Sender: FDA-Public Use
  Company Number: 2008001202

PATIENT
  Age: 84 Year
  Sex: Female

DRUGS (6)
  1. MACUGEN [Suspect]
     Dosage: INTRA-VITREAL
     Dates: start: 20080403, end: 20080403
  2. CILOXAN [Suspect]
     Dates: start: 20080401, end: 20080403
  3. LOSARTAN POTASSIUM WITH HYDROCHLOROTHIAZIDE (HYZAAR) [Concomitant]
  4. SOTALOL HCL [Concomitant]
  5. AMLODIPINE [Concomitant]
  6. ZOLPIDEM [Concomitant]

REACTIONS (6)
  - ANAPHYLACTIC SHOCK [None]
  - CORONARY ARTERY OCCLUSION [None]
  - MACROGLOSSIA [None]
  - OEDEMA MOUTH [None]
  - TACHYPNOEA [None]
  - URTICARIA [None]
